FAERS Safety Report 17001817 (Version 4)
Quarter: 2020Q1

REPORT INFORMATION
  Report Type: Spontaneous
  Country: US (occurrence: US)
  Receive Date: 20191106
  Receipt Date: 20200302
  Transmission Date: 20200409
  Serious: No
  Sender: FDA-Public Use
  Company Number: US-PFIZER INC-2019476656

PATIENT
  Age: 69 Year
  Sex: Female

DRUGS (5)
  1. IBRANCE [Suspect]
     Active Substance: PALBOCICLIB
     Dosage: 125 MG, UNK
     Dates: start: 20190816
  2. IBRANCE [Suspect]
     Active Substance: PALBOCICLIB
     Indication: BREAST CANCER FEMALE
     Dosage: 125 MG, CYCLIC (TAKE 1 CAPSULE DAILY. TAKE 21 DAYS THEN REST FOR 7 DAYS)
     Route: 048
     Dates: start: 20190918
  3. LETROZOLE. [Concomitant]
     Active Substance: LETROZOLE
     Dosage: UNK
     Dates: start: 201910
  4. IBRANCE [Suspect]
     Active Substance: PALBOCICLIB
     Dosage: UNK
     Dates: end: 201909
  5. IBRANCE [Suspect]
     Active Substance: PALBOCICLIB
     Dosage: 100 MG, CYCLIC (21 DAYS ON, 7 DAYS OFF)
     Route: 048
     Dates: start: 201910

REACTIONS (9)
  - Neuritis [Unknown]
  - Arthralgia [Unknown]
  - Platelet count decreased [Unknown]
  - Oedema peripheral [Unknown]
  - Muscle spasms [Unknown]
  - Arthritis [Unknown]
  - Feeling abnormal [Unknown]
  - Hot flush [Unknown]
  - Feeling of body temperature change [Unknown]
